FAERS Safety Report 9106737 (Version 2)
Quarter: 2013Q1

REPORT INFORMATION
  Report Type: Spontaneous
  Country: GB (occurrence: GB)
  Receive Date: 20130220
  Receipt Date: 20130226
  Transmission Date: 20140127
  Serious: Yes (Other)
  Sender: FDA-Public Use
  Company Number: GB-PFIZER INC-2013062563

PATIENT
  Age: 80 Year
  Sex: Male

DRUGS (9)
  1. SPIRONOLACTONE [Suspect]
     Indication: CARDIAC FAILURE
     Dosage: UNK
  2. GOSERELIN [Concomitant]
     Indication: PROSTATE CANCER
  3. BICALUTAMIDE [Concomitant]
     Indication: PROSTATE CANCER
  4. DIAETYLSTILBOESTROL [Concomitant]
     Indication: PROSTATE CANCER
  5. CYPROTERONE ACETATE [Concomitant]
     Indication: PROSTATE CANCER
  6. DOCETAXEL [Concomitant]
     Indication: PROSTATE CANCER
     Dosage: EIGHT CYCLES
  7. MITOXANTRONE [Concomitant]
     Indication: PROSTATE CANCER
     Dosage: SIX CYCLES
  8. CYCLOPHOSPHAMIDE [Concomitant]
     Indication: PROSTATE CANCER
     Dosage: DAILY
     Route: 048
  9. DEXAMETHASONE [Concomitant]
     Indication: PROSTATE CANCER
     Dosage: UNK

REACTIONS (1)
  - Prostate cancer [Recovered/Resolved with Sequelae]
